FAERS Safety Report 19360597 (Version 1)
Quarter: 2021Q2

REPORT INFORMATION
  Report Type: Report from Study
  Country: US (occurrence: US)
  Receive Date: 20210601
  Receipt Date: 20210601
  Transmission Date: 20210717
  Serious: Yes (Other)
  Sender: FDA-Public Use
  Company Number: US-BAYER-2021-137213

PATIENT
  Age: 49 Year
  Sex: Male

DRUGS (4)
  1. VITAMIN E NOS [Concomitant]
     Active Substance: .ALPHA.-TOCOPHEROL
     Dosage: UNK
  2. STIVARGA [Suspect]
     Active Substance: REGORAFENIB
     Indication: RECTOSIGMOID CANCER
     Dosage: 160 MG DAILY  21 DAYS ON 7 DAYS OFF
     Route: 048
     Dates: start: 20201014
  3. IBUPROFEN. [Concomitant]
     Active Substance: IBUPROFEN
     Dosage: 200 MG
  4. STIVARGA [Suspect]
     Active Substance: REGORAFENIB
     Indication: COLORECTAL CANCER METASTATIC

REACTIONS (9)
  - Skin exfoliation [Not Recovered/Not Resolved]
  - Blister [Recovering/Resolving]
  - Palmoplantar keratoderma [Recovering/Resolving]
  - Dysphonia [Not Recovered/Not Resolved]
  - Croup infectious [None]
  - Palmar-plantar erythrodysaesthesia syndrome [Recovering/Resolving]
  - Pain in extremity [None]
  - Throat irritation [None]
  - Blood blister [Not Recovered/Not Resolved]
